FAERS Safety Report 7381581-5 (Version None)
Quarter: 2011Q1

REPORT INFORMATION
  Report Type: 
  Country: None (occurrence: None)
  Receive Date: 20110329
  Receipt Date: 20110324
  Transmission Date: 20110831
  Serious: Yes (Other)
  Sender: FDA-Public Use
  Company Number: DE-BRISTOL-MYERS SQUIBB COMPANY-15605785

PATIENT
  Age: 72 Year
  Sex: Female

DRUGS (8)
  1. ABILIFY [Suspect]
     Dosage: 1 TABLET.
  2. OXAZEPAM [Suspect]
     Dosage: 1 TABLET OXAZEPAM 10MG.
  3. PANTOPRAZOLE [Suspect]
  4. RAMIPRIL + HCTZ [Suspect]
     Dosage: 1 DF = 2.5/12.5 UNIT NOT MENTIONED,1 TAB
  5. FLUPENTIXOL [Suspect]
     Dosage: FLUPENTIXOLE DEPOT
  6. DIPIPERON [Suspect]
     Dosage: 2 TABLETS DIPIPERON 40MG.
  7. OLANZAPINE [Suspect]
     Dosage: 3 TABLETS OLANZAPINE 10MG.
  8. LAXOBERAL [Suspect]

REACTIONS (9)
  - HYPOTENSION [None]
  - HYPOTHERMIA [None]
  - COAGULATION TEST ABNORMAL [None]
  - SOMNOLENCE [None]
  - CARDIOVASCULAR DISORDER [None]
  - TACHYCARDIA [None]
  - DRUG ABUSE [None]
  - BRADYCARDIA [None]
  - COMA [None]
